FAERS Safety Report 8765970 (Version 3)
Quarter: 2012Q4

REPORT INFORMATION
  Report Type: 
  Country: US (occurrence: US)
  Receive Date: 20120904
  Receipt Date: 20121004
  Transmission Date: 20130627
  Serious: Yes (Disabling)
  Sender: FDA-Public Use
  Company Number: US-009507513-1208USA012478

PATIENT
  Sex: Female

DRUGS (3)
  1. DULERA [Suspect]
     Indication: ASTHMA
     Dosage: 2 DF, bid
     Route: 055
     Dates: start: 20120718, end: 20120823
  2. SINGULAIR [Concomitant]
     Dosage: UNK
     Dates: end: 2012
  3. ALBUTEROL [Concomitant]
     Dosage: UNK, prn

REACTIONS (3)
  - Asthma [Recovered/Resolved]
  - Increased appetite [Recovered/Resolved]
  - Weight increased [Recovering/Resolving]
